FAERS Safety Report 26213003 (Version 1)
Quarter: 2025Q4

REPORT INFORMATION
  Report Type: Spontaneous
  Country: BR (occurrence: BR)
  Receive Date: 20251230
  Receipt Date: 20251230
  Transmission Date: 20260117
  Serious: Yes (Hospitalization)
  Sender: AMGEN
  Company Number: BR-AMGEN-BRASP2025254580

PATIENT
  Age: 5 Year
  Sex: Male

DRUGS (2)
  1. ADALIMUMAB [Suspect]
     Active Substance: ADALIMUMAB
     Indication: Juvenile idiopathic arthritis
     Dosage: UNK
     Route: 065
  2. METHOTREXATE [Concomitant]
     Active Substance: METHOTREXATE
     Indication: Juvenile idiopathic arthritis
     Dosage: 15 MILLIGRAM/SQ. METER, QWK (FOR 6 MONTHS)
     Route: 058

REACTIONS (6)
  - Pulmonary histoplasmosis [Recovering/Resolving]
  - Histoplasmosis disseminated [Recovering/Resolving]
  - Rhinorrhoea [Unknown]
  - Conjunctivitis [Unknown]
  - Adenovirus test positive [Unknown]
  - Epstein-Barr virus antibody positive [Unknown]
